FAERS Safety Report 17875864 (Version 4)
Quarter: 2021Q1

REPORT INFORMATION
  Report Type: Spontaneous
  Country: US (occurrence: US)
  Receive Date: 20200609
  Receipt Date: 20210326
  Transmission Date: 20210419
  Serious: No
  Sender: FDA-Public Use
  Company Number: US-PFIZER INC-2019384509

PATIENT
  Age: 58 Year
  Sex: Female
  Weight: 55.9 kg

DRUGS (2)
  1. PREMARIN [Suspect]
     Active Substance: ESTROGENS, CONJUGATED
     Indication: VULVOVAGINAL DRYNESS
     Dosage: 0.5 G, AS NEEDED [INSERT 0.5 G INTO VAGINA ONE TIME EACH DAY QHS (BEFORE BED) OR PRN (AS NEEDED)]
     Route: 067
  2. PREMARIN [Suspect]
     Active Substance: ESTROGENS, CONJUGATED
     Dosage: 1 G, 1X/DAY (1 GM VAGINALLY EVERY PM)
     Route: 067

REACTIONS (5)
  - Intentional product misuse [Unknown]
  - Off label use [Unknown]
  - Product prescribing error [Unknown]
  - Product use issue [Unknown]
  - Pain [Unknown]
